FAERS Safety Report 19791969 (Version 3)
Quarter: 2021Q4

REPORT INFORMATION
  Report Type: Spontaneous
  Country: US (occurrence: US)
  Receive Date: 20210906
  Receipt Date: 20211015
  Transmission Date: 20220303
  Serious: Yes (Life-Threatening, Hospitalization, Other)
  Sender: FDA-Public Use
  Company Number: US-MLMSERVICE-20210825-3070527-1

PATIENT
  Age: 60 Year
  Sex: Male

DRUGS (11)
  1. CISATRACURIUM BESYLATE [Suspect]
     Active Substance: CISATRACURIUM BESYLATE
     Indication: Mechanical ventilation
     Dosage: UNK
  2. DEXAMETHASONE [Concomitant]
     Active Substance: DEXAMETHASONE
     Indication: COVID-19
     Dosage: UNK
  3. REMDESIVIR [Concomitant]
     Active Substance: REMDESIVIR
     Indication: COVID-19
     Dosage: UNK
  4. MIDAZOLAM [Concomitant]
     Active Substance: MIDAZOLAM
     Indication: Pain
     Dosage: INFUSION
  5. MIDAZOLAM [Concomitant]
     Active Substance: MIDAZOLAM
     Indication: Sedation
  6. DEXMEDETOMIDINE [Concomitant]
     Active Substance: DEXMEDETOMIDINE
     Indication: Sedation
     Dosage: INFUSION
  7. DEXMEDETOMIDINE [Concomitant]
     Active Substance: DEXMEDETOMIDINE
     Indication: Pain
  8. PROPOFOL [Concomitant]
     Active Substance: PROPOFOL
     Indication: Pain
     Dosage: INFUSION
  9. PROPOFOL [Concomitant]
     Active Substance: PROPOFOL
     Indication: Sedation
  10. FENTANYL [Concomitant]
     Active Substance: FENTANYL
     Indication: Pain
     Dosage: INFUSION
  11. FENTANYL [Concomitant]
     Active Substance: FENTANYL
     Indication: Sedation

REACTIONS (1)
  - Hyperthermia malignant [Recovering/Resolving]
